FAERS Safety Report 4661103-X (Version None)
Quarter: 2005Q2

REPORT INFORMATION
  Report Type: 
  Country: None (occurrence: None)
  Receive Date: 20050511
  Receipt Date: 20050502
  Transmission Date: 20051028
  Serious: Yes (Other)
  Sender: FDA-Public Use
  Company Number: 2005069512

PATIENT
  Age: 40 Year
  Sex: Female

DRUGS (4)
  1. ZOLOFT [Suspect]
     Indication: ILL-DEFINED DISORDER
     Dosage: 125 MG (125 MG, 1 IN 1 D), ORAL
     Route: 048
     Dates: start: 20021201, end: 20040201
  2. MONTELUKAST (MONTELUKAST) [Suspect]
     Indication: ASTHMA
  3. FORMOTEROL FUMARATE (FORMOTEROL FUMARATE) [Concomitant]
  4. BUDESONIDE [Concomitant]

REACTIONS (3)
  - ASTHMA [None]
  - CONDITION AGGRAVATED [None]
  - STOMACH DISCOMFORT [None]
